FAERS Safety Report 12318809 (Version 3)
Quarter: 2016Q2

REPORT INFORMATION
  Report Type: Report from Study
  Country: US (occurrence: US)
  Receive Date: 20160429
  Receipt Date: 20160531
  Transmission Date: 20160815
  Serious: Yes (Life-Threatening, Hospitalization)
  Sender: FDA-Public Use
  Company Number: US-ROCHE-1721902

PATIENT
  Age: 56 Year
  Sex: Female
  Weight: 51.8 kg

DRUGS (5)
  1. PERTUZUMAB [Suspect]
     Active Substance: PERTUZUMAB
     Indication: GALLBLADDER CANCER
     Route: 042
     Dates: start: 20151210, end: 20151210
  2. PERTUZUMAB [Suspect]
     Active Substance: PERTUZUMAB
     Dosage: MAINTENANCE DOSE. CYCLE 4, ON 11/FEB/2016, MOST RECENT DOSE DOSE WAS GIVEN.
     Route: 042
     Dates: end: 20160325
  3. TRASTUZUMAB [Suspect]
     Active Substance: TRASTUZUMAB
     Indication: GALLBLADDER CANCER
     Dosage: LOADING DOSE
     Route: 042
     Dates: start: 20151210, end: 20151210
  4. NEURONTIN [Concomitant]
     Active Substance: GABAPENTIN
     Indication: NEUROPATHY PERIPHERAL
     Route: 065
     Dates: start: 201511
  5. TRASTUZUMAB [Suspect]
     Active Substance: TRASTUZUMAB
     Dosage: MAINTENANCE DOSE. CYCLE 4, ON 11/FEB/2016, MOST RECENT DOSE DOSE WAS GIVEN.
     Route: 042
     Dates: end: 20160325

REACTIONS (2)
  - Cardiac failure [Not Recovered/Not Resolved]
  - Cardiogenic shock [Recovering/Resolving]

NARRATIVE: CASE EVENT DATE: 20160302
